FAERS Safety Report 17075494 (Version 1)
Quarter: 2019Q4

REPORT INFORMATION
  Report Type: Spontaneous
  Country: US (occurrence: US)
  Receive Date: 20191126
  Receipt Date: 20191126
  Transmission Date: 20200122
  Serious: No
  Sender: FDA-Public Use
  Company Number: US-PFIZER INC-2019432891

PATIENT
  Age: 53 Year
  Sex: Male

DRUGS (1)
  1. XELJANZ [Suspect]
     Active Substance: TOFACITINIB CITRATE
     Indication: INFLAMMATORY BOWEL DISEASE
     Dosage: 10 MG, UNK

REACTIONS (2)
  - Drug effective for unapproved indication [Unknown]
  - Off label use [Unknown]
